FAERS Safety Report 12004664 (Version 2)
Quarter: 2016Q3

REPORT INFORMATION
  Report Type: Spontaneous
  Country: JP (occurrence: JP)
  Receive Date: 20160204
  Receipt Date: 20160729
  Transmission Date: 20161109
  Serious: Yes (Hospitalization, Other)
  Sender: FDA-Public Use
  Company Number: JP-BRISTOL-MYERS SQUIBB COMPANY-BMS-2016-004942

PATIENT
  Age: 7 Decade
  Sex: Male

DRUGS (1)
  1. KENACORT [Suspect]
     Active Substance: TRIAMCINOLONE
     Indication: OESOPHAGEAL STENOSIS
     Dosage: 100 MG, UNK
     Route: 065

REACTIONS (3)
  - Off label use [Unknown]
  - Oesophageal perforation [Unknown]
  - Mediastinitis [Unknown]
